FAERS Safety Report 15789020 (Version 1)
Quarter: 2019Q1

REPORT INFORMATION
  Report Type: Spontaneous
  Country: SE (occurrence: SE)
  Receive Date: 20190104
  Receipt Date: 20190104
  Transmission Date: 20190417
  Serious: Yes (Life-Threatening, Hospitalization, Other)
  Sender: FDA-Public Use
  Company Number: SE-BAYER-2019-000338

PATIENT
  Age: 28 Year
  Sex: Female

DRUGS (10)
  1. ACETYLSALICYLIC ACID (} 100 MG) [Suspect]
     Active Substance: ASPIRIN
  2. FONDAPARINUX [Suspect]
     Active Substance: FONDAPARINUX
  3. GENTAMICIN. [Concomitant]
     Active Substance: GENTAMICIN
     Indication: MYOCARDITIS
  4. EPINEPHRINE. [Concomitant]
     Active Substance: EPINEPHRINE
  5. TICAGRELOR. [Suspect]
     Active Substance: TICAGRELOR
  6. DOXYCYCLINE. [Concomitant]
     Active Substance: DOXYCYCLINE
     Indication: MYOCARDITIS
  7. MILRINONE [Concomitant]
     Active Substance: MILRINONE
  8. ISOPROTERENOL [ISOPRENALINE] [Concomitant]
  9. BENZYLPENICILLIN [Concomitant]
     Active Substance: PENICILLIN G
     Indication: MYOCARDITIS
     Dosage: 3 DF, QD
  10. DOBUTAMINE [Concomitant]
     Active Substance: DOBUTAMINE\DOBUTAMINE HYDROCHLORIDE

REACTIONS (11)
  - Catheter site haemorrhage [None]
  - Acute kidney injury [None]
  - Haemorrhagic diathesis [None]
  - Liver injury [None]
  - Upper gastrointestinal haemorrhage [None]
  - Spinal cord infarction [None]
  - Paraplegia [None]
  - Spinal cord haemorrhage [None]
  - Atrioventricular block [None]
  - Cardiac arrest [None]
  - Cardiogenic shock [None]
